FAERS Safety Report 13286238 (Version 1)
Quarter: 2017Q1

REPORT INFORMATION
  Report Type: Spontaneous
  Country: US (occurrence: US)
  Receive Date: 20170302
  Receipt Date: 20170302
  Transmission Date: 20170428
  Serious: No
  Sender: FDA-Public Use
  Company Number: US-ALLERGAN-1000083113

PATIENT
  Sex: Female

DRUGS (2)
  1. VIIBRYD [Suspect]
     Active Substance: VILAZODONE HYDROCHLORIDE
     Dosage: 40 MG, UNK
  2. VIIBRYD [Suspect]
     Active Substance: VILAZODONE HYDROCHLORIDE
     Dosage: 30 MG, QD

REACTIONS (8)
  - Amnesia [Unknown]
  - Unevaluable event [Unknown]
  - Gastrointestinal disorder [Recovering/Resolving]
  - Dizziness [Not Recovered/Not Resolved]
  - Paraesthesia [Recovered/Resolved]
  - Communication disorder [Unknown]
  - Feeling abnormal [Unknown]
  - Intentional product misuse [Not Recovered/Not Resolved]
